FAERS Safety Report 12972901 (Version 4)
Quarter: 2018Q1

REPORT INFORMATION
  Report Type: Spontaneous
  Country: US (occurrence: US)
  Receive Date: 20161124
  Receipt Date: 20180312
  Transmission Date: 20180508
  Serious: No
  Sender: FDA-Public Use
  Company Number: US-PFIZER INC-2016544774

PATIENT
  Age: 48 Year
  Sex: Male
  Weight: 87.53 kg

DRUGS (9)
  1. EFFEXOR [Concomitant]
     Active Substance: VENLAFAXINE HYDROCHLORIDE
     Dosage: 37.5 MG, 1X/DAY
     Dates: start: 2016, end: 20161116
  2. LYRICA [Suspect]
     Active Substance: PREGABALIN
     Indication: NEURALGIA
     Dosage: 75 MG, 3X/DAY
     Route: 048
     Dates: start: 2016
  3. EFFEXOR [Concomitant]
     Active Substance: VENLAFAXINE HYDROCHLORIDE
     Dosage: 37.5 MG, 2X/DAY
  4. HYDROMORPHONE [Concomitant]
     Active Substance: HYDROMORPHONE
     Dosage: 5 MG, TWO TO THREE TIMES PER DAY
     Dates: start: 201610
  5. GABAPENTIN. [Concomitant]
     Active Substance: GABAPENTIN
     Dosage: 2700 MG, UNK
  6. LYRICA [Suspect]
     Active Substance: PREGABALIN
     Dosage: 100 MG, 3X/DAY
     Route: 048
     Dates: start: 20161213
  7. HYDROMORPHONE [Concomitant]
     Active Substance: HYDROMORPHONE
     Indication: PAIN MANAGEMENT
     Dosage: 15 MG, 2X/DAY
     Dates: start: 201610
  8. XARELTO [Concomitant]
     Active Substance: RIVAROXABAN
     Indication: THROMBOSIS
     Dosage: 20 MG, 1X/DAY
     Dates: start: 2016
  9. OXYMORPHONE [Concomitant]
     Active Substance: OXYMORPHONE
     Dosage: 20 MG, 2X/DAY

REACTIONS (2)
  - Drug ineffective [Not Recovered/Not Resolved]
  - Intentional product misuse [Unknown]
